FAERS Safety Report 9559330 (Version 1)
Quarter: 2013Q3

REPORT INFORMATION
  Report Type: Spontaneous
  Country: US (occurrence: None)
  Receive Date: 20130925
  Receipt Date: 20130925
  Transmission Date: 20140515
  Serious: Yes (Other)
  Sender: FDA-Public Use
  Company Number: AUR-APL-2013-07823

PATIENT
  Age: 58 Year
  Sex: Male

DRUGS (4)
  1. GABAPENTIN (GABAPENTIN) [Suspect]
  2. MOTRIN (IBUPROFEN) [Suspect]
  3. TRAMADOL HCL [Suspect]
  4. TYLENOL (PARACETAMOL) [Suspect]

REACTIONS (8)
  - Pain [None]
  - Activities of daily living impaired [None]
  - Myalgia [None]
  - Influenza like illness [None]
  - Ligament pain [None]
  - Tendon pain [None]
  - Drug effect decreased [None]
  - No therapeutic response [None]
